FAERS Safety Report 8097914 (Version 3)
Quarter: 2012Q4

REPORT INFORMATION
  Report Type: 
  Country: JP (occurrence: JP)
  Receive Date: 20110819
  Receipt Date: 20121105
  Transmission Date: 20130627
  Serious: Yes (Death, Life-Threatening, Hospitalization, Other)
  Sender: FDA-Public Use
  Company Number: JP-ROCHE-634036

PATIENT
  Age: 55 Year
  Sex: Female
  Weight: 59 kg

DRUGS (11)
  1. PREDONINE [Suspect]
     Indication: RHEUMATOID ARTHRITIS
     Route: 048
  2. PREDONINE [Suspect]
     Route: 048
  3. VANCOMYCIN [Suspect]
     Indication: RHEUMATOID ARTHRITIS
     Route: 041
  4. RHEUMATREX [Concomitant]
     Indication: RHEUMATOID ARTHRITIS
     Dosage: NOTE: 4 MG, 42 MG
     Route: 048
  5. CYTOTEC [Concomitant]
     Indication: PROPHYLAXIS
     Route: 048
  6. CELECOXIB [Concomitant]
     Indication: RHEUMATOID ARTHRITIS
     Dosage: DRUG NAME: CELECOX
     Route: 048
  7. RIMATIL [Concomitant]
     Indication: RHEUMATOID ARTHRITIS
     Route: 048
     Dates: end: 20110106
  8. METOLATE [Concomitant]
     Indication: RHEUMATOID ARTHRITIS
     Route: 048
     Dates: end: 20110106
  9. TOCILIZUMAB [Suspect]
     Indication: RHEUMATOID ARTHRITIS
     Route: 041
     Dates: start: 20090129, end: 20090129
  10. TOCILIZUMAB [Suspect]
     Route: 041
     Dates: start: 20090224, end: 20090224
  11. TOCILIZUMAB [Suspect]
     Route: 041
     Dates: start: 20090324, end: 20090324

REACTIONS (9)
  - Pneumonia bacterial [Fatal]
  - Endocarditis [Recovered/Resolved with Sequelae]
  - Sepsis [Recovered/Resolved]
  - Abscess limb [Recovered/Resolved]
  - Skin ulcer [Recovered/Resolved]
  - Arthritis bacterial [Recovered/Resolved]
  - Cerebral infarction [Recovered/Resolved]
  - Platelet count decreased [Recovered/Resolved]
  - Red blood cell count decreased [Recovered/Resolved]
